FAERS Safety Report 10071712 (Version 2)
Quarter: 2014Q2

REPORT INFORMATION
  Report Type: Spontaneous
  Country: US (occurrence: US)
  Receive Date: 20140411
  Receipt Date: 20140513
  Transmission Date: 20141212
  Serious: Yes (Death, Hospitalization)
  Sender: FDA-Public Use
  Company Number: US-AMGEN-USASP2014025238

PATIENT
  Age: 92 Year
  Sex: Female

DRUGS (9)
  1. PROLIA [Suspect]
     Indication: OSTEOPOROSIS
     Dosage: 60 UNK, Q6MO
     Route: 058
     Dates: start: 20120905
  2. AMLODIPINE [Concomitant]
     Dosage: 5 MG, QD
     Route: 048
     Dates: start: 20120828
  3. ASPIRIN [Concomitant]
     Dosage: 81 MG, UNK
     Route: 048
     Dates: start: 20120905
  4. BENAZEPRIL HCL [Concomitant]
     Dosage: 20 MG, BID
     Route: 048
     Dates: start: 20120828
  5. HYDRALAZINE HCL [Concomitant]
     Dosage: 25 MG, UNK
     Route: 048
     Dates: start: 20130123
  6. MULTIVITAMIN                       /00097801/ [Concomitant]
     Dosage: UNK UNK, QD
     Route: 048
  7. OMEGA 3                            /01333901/ [Concomitant]
     Dosage: 1000 MG, UNK
     Route: 048
  8. VITAMIN C                          /00008001/ [Concomitant]
     Dosage: 1000 MG, UNK
     Route: 048
  9. VITAMIN B [Concomitant]
     Dosage: 400 MG, QD
     Route: 048

REACTIONS (13)
  - Colitis ischaemic [Fatal]
  - Peritonitis [Fatal]
  - Renal failure acute [Fatal]
  - Hyperkalaemia [Fatal]
  - Hypermagnesaemia [Fatal]
  - Aortic arteriosclerosis [Not Recovered/Not Resolved]
  - Hiatus hernia [Not Recovered/Not Resolved]
  - Spinal compression fracture [Not Recovered/Not Resolved]
  - Hypotension [Not Recovered/Not Resolved]
  - Fall [Not Recovered/Not Resolved]
  - Dizziness [Not Recovered/Not Resolved]
  - Hypothermia [Not Recovered/Not Resolved]
  - Blood calcium decreased [Not Recovered/Not Resolved]
